FAERS Safety Report 17646812 (Version 1)
Quarter: 2020Q2

REPORT INFORMATION
  Report Type: Spontaneous
  Country: US (occurrence: US)
  Receive Date: 20200408
  Receipt Date: 20200408
  Transmission Date: 20200713
  Serious: No
  Sender: FDA-Public Use
  Company Number: US-009507513-2004USA001688

PATIENT
  Age: 40 Year
  Sex: Male

DRUGS (6)
  1. PRIMAXIN IV [Suspect]
     Active Substance: CILASTATIN SODIUM\IMIPENEM
     Indication: KERATITIS BACTERIAL
     Dosage: 1 GRAM, Q8H
     Route: 042
     Dates: start: 2018
  2. CLARITHROMYCIN. [Concomitant]
     Active Substance: CLARITHROMYCIN
     Route: 048
  3. AMIKACIN. [Concomitant]
     Active Substance: AMIKACIN
  4. TRIMETHOPRIM SULFATE [Concomitant]
     Active Substance: TRIMETHOPRIM SULFATE
     Route: 048
  5. BESIFLOXACIN HYDROCHLORIDE [Concomitant]
     Active Substance: BESIFLOXACIN HYDROCHLORIDE
  6. ERYTHROMYCIN. [Concomitant]
     Active Substance: ERYTHROMYCIN

REACTIONS (1)
  - Product use in unapproved indication [Unknown]
